FAERS Safety Report 4342061-4 (Version None)
Quarter: 2004Q2

REPORT INFORMATION
  Report Type: 
  Country: None (occurrence: None)
  Receive Date: 20040415
  Receipt Date: 20040405
  Transmission Date: 20050107
  Serious: Yes (Other)
  Sender: FDA-Public Use
  Company Number: 2004023305

PATIENT
  Age: 66 Year
  Sex: Female
  Weight: 67.1324 kg

DRUGS (2)
  1. LIPITOR [Suspect]
     Indication: BLOOD CHOLESTEROL INCREASED
     Dosage: 10 MG (DAILY), ORAL
     Route: 048
     Dates: start: 20030101, end: 20040301
  2. GLICLAZIDE (GLICLAZIDE) [Concomitant]

REACTIONS (3)
  - MUSCLE DISORDER [None]
  - PAIN [None]
  - PAIN IN EXTREMITY [None]
